FAERS Safety Report 4428689-1 (Version None)
Quarter: 2004Q3

REPORT INFORMATION
  Report Type: 
  Country: None (occurrence: None)
  Receive Date: 20040818
  Receipt Date: 20031118
  Transmission Date: 20050211
  Serious: Yes (Hospitalization)
  Sender: FDA-Public Use
  Company Number: US-BRISTOL-MYERS SQUIBB COMPANY-12440053

PATIENT
  Age: 89 Year
  Sex: Female
  Weight: 51 kg

DRUGS (1)
  1. TEQUIN [Suspect]
     Indication: PNEUMONIA
     Route: 042
     Dates: start: 20020325, end: 20020329

REACTIONS (1)
  - TORSADE DE POINTES [None]
